FAERS Safety Report 22359126 (Version 1)
Quarter: 2023Q2

REPORT INFORMATION
  Report Type: Spontaneous
  Country: US (occurrence: US)
  Receive Date: 20230524
  Receipt Date: 20230524
  Transmission Date: 20230722
  Serious: Yes (Other)
  Sender: FDA-Public Use
  Company Number: US-UCBSA-2023002577

PATIENT
  Sex: Female

DRUGS (1)
  1. CIMZIA [Suspect]
     Active Substance: CERTOLIZUMAB PEGOL
     Indication: Rheumatoid arthritis
     Dosage: 200 MILLIGRAM, EV 2 WEEKS(QOW)
     Route: 058
     Dates: start: 20220408, end: 2022

REACTIONS (7)
  - Rheumatoid arthritis [Recovered/Resolved]
  - COVID-19 [Recovered/Resolved]
  - Viral infection [Recovered/Resolved]
  - Injection site reaction [Recovering/Resolving]
  - Injection site erythema [Recovering/Resolving]
  - Injection site discomfort [Recovering/Resolving]
  - Flushing [Recovering/Resolving]

NARRATIVE: CASE EVENT DATE: 20220101
